FAERS Safety Report 6963117-3 (Version None)
Quarter: 2010Q3

REPORT INFORMATION
  Report Type: 
  Country: None (occurrence: None)
  Receive Date: 20100902
  Receipt Date: 20100825
  Transmission Date: 20110219
  Serious: Yes (Death, Other)
  Sender: FDA-Public Use
  Company Number: US-BAXTER-2010BH020782

PATIENT
  Age: 79 Year
  Sex: Male

DRUGS (1)
  1. DIANEAL [Suspect]
     Indication: PERITONEAL DIALYSIS
     Route: 033
     Dates: end: 20100601

REACTIONS (4)
  - INTESTINAL PERFORATION [None]
  - LARGE INTESTINE PERFORATION [None]
  - PERIRECTAL ABSCESS [None]
  - SEPSIS [None]
